FAERS Safety Report 6173565-X (Version None)
Quarter: 2009Q2

REPORT INFORMATION
  Report Type: 
  Country: None (occurrence: None)
  Receive Date: 20090430
  Receipt Date: 20090423
  Transmission Date: 20091009
  Serious: Yes (Congenital Anomaly)
  Sender: FDA-Public Use
  Company Number: B0572345B

PATIENT

DRUGS (2)
  1. AMOXICILLIN [Suspect]
     Indication: LISTERIOSIS
  2. AMIKACIN [Suspect]

REACTIONS (7)
  - DRUG EXPOSURE DURING PREGNANCY [None]
  - HYDROCEPHALUS [None]
  - MACROCEPHALY [None]
  - PSYCHOMOTOR RETARDATION [None]
  - RESPIRATORY DISTRESS [None]
  - STATUS EPILEPTICUS [None]
  - THROMBOPHLEBITIS [None]
